FAERS Safety Report 17602243 (Version 1)
Quarter: 2020Q1

REPORT INFORMATION
  Report Type: Spontaneous
  Country: US (occurrence: US)
  Receive Date: 20200331
  Receipt Date: 20200331
  Transmission Date: 20200409
  Serious: Yes (Other)
  Sender: FDA-Public Use
  Company Number: US-PFIZER INC-2020127161

PATIENT
  Age: 44 Year
  Sex: Female
  Weight: 64.2 kg

DRUGS (14)
  1. REMODULIN [Concomitant]
     Active Substance: TREPROSTINIL
     Dosage: UNK (86NANO/KILOGRAM PER MINUTE)
     Route: 042
  2. LOMOTIL [Concomitant]
     Active Substance: ATROPINE SULFATE\DIPHENOXYLATE HYDROCHLORIDE
     Dosage: UNK UNK, AS NEEDED (1 OR 2 Q (EVERY) 6HRS, PRN (PER NEEDED))
  3. TRAMADOL. [Concomitant]
     Active Substance: TRAMADOL
     Dosage: 50 MG, AS NEEDED (50MG PRN (PER NEEDED))
  4. VITAMIN D3 [Concomitant]
     Active Substance: CHOLECALCIFEROL
     Dosage: 2000 IU, UNK (2000 IUD)
  5. TADALAFIL. [Concomitant]
     Active Substance: TADALAFIL
     Dosage: 20 MG, 2X/DAY
  6. ZOFRAN [Concomitant]
     Active Substance: ONDANSETRON HYDROCHLORIDE
     Dosage: 4 MG, UNK
     Route: 060
  7. PEPCID [Concomitant]
     Active Substance: FAMOTIDINE
     Dosage: 20 MG, 1X/DAY
  8. BUMETANIDE. [Concomitant]
     Active Substance: BUMETANIDE
     Dosage: 1 MG, 1X/DAY
  9. MAGNESIUM [Concomitant]
     Active Substance: MAGNESIUM
     Dosage: 500 MG, UNK
  10. IBUPROFEN. [Suspect]
     Active Substance: IBUPROFEN
     Dosage: 600 MG, 3X/DAY
  11. IMODIUM [Concomitant]
     Active Substance: LOPERAMIDE HYDROCHLORIDE
     Dosage: 2 MG, UNK
  12. OPSUMIT [Concomitant]
     Active Substance: MACITENTAN
     Dosage: 10 MG, UNK
     Dates: start: 202003
  13. ALDACTONE [Concomitant]
     Active Substance: SPIRONOLACTONE
     Dosage: 50 MG, 1X/DAY
  14. POTASSIUM [POTASSIUM CHLORIDE] [Concomitant]
     Active Substance: POTASSIUM CHLORIDE
     Dosage: 99 MG, UNK

REACTIONS (3)
  - Overdose [Unknown]
  - Weight increased [Unknown]
  - Fluid retention [Unknown]

NARRATIVE: CASE EVENT DATE: 202003
